FAERS Safety Report 8234338-7 (Version None)
Quarter: 2012Q1

REPORT INFORMATION
  Report Type: 
  Country: None (occurrence: None)
  Receive Date: 20120326
  Receipt Date: 20120322
  Transmission Date: 20120608
  Serious: Yes (Life-Threatening, Other)
  Sender: FDA-Public Use
  Company Number: US-PURDUE-USA-2012-0084261

PATIENT
  Sex: Female

DRUGS (4)
  1. KLONOPIN [Suspect]
     Indication: PRODUCT USED FOR UNKNOWN INDICATION
  2. ZANAFLEX [Suspect]
     Indication: PRODUCT USED FOR UNKNOWN INDICATION
  3. PERCOCET [Suspect]
     Indication: PRODUCT USED FOR UNKNOWN INDICATION
  4. BUTRANS [Suspect]
     Indication: PRODUCT USED FOR UNKNOWN INDICATION
     Dosage: 10 MCG/HR, UNK

REACTIONS (2)
  - RESPIRATORY ARREST [None]
  - RESPIRATORY DISTRESS [None]
